FAERS Safety Report 5973115-4 (Version None)
Quarter: 2008Q4

REPORT INFORMATION
  Report Type: 
  Country: None (occurrence: None)
  Receive Date: 20081126
  Receipt Date: 20081126
  Transmission Date: 20090506
  Serious: Yes (Hospitalization)
  Sender: FDA-Public Use
  Company Number: None

PATIENT
  Sex: Female
  Weight: 67 kg

DRUGS (2)
  1. NAFCILLIN SODIUM [Suspect]
     Indication: ENDOCARDITIS STAPHYLOCOCCAL
     Dosage: 2 GM Q4H IV
     Route: 042
     Dates: start: 20080913, end: 20080916
  2. NAFCILLIN SODIUM [Suspect]
     Indication: ENDOCARDITIS STAPHYLOCOCCAL
     Dosage: 2 GM Q4H IV
     Route: 042
     Dates: start: 20080918, end: 20080924

REACTIONS (1)
  - HYPERBILIRUBINAEMIA [None]
